FAERS Safety Report 25987579 (Version 1)
Quarter: 2025Q4

REPORT INFORMATION
  Report Type: Report from Study
  Country: US (occurrence: US)
  Receive Date: 20251103
  Receipt Date: 20251103
  Transmission Date: 20260118
  Serious: Yes (Other)
  Sender: ACADIA PHARMACEUTICALS
  Company Number: US-ACADIA PHARMACEUTICALS INC.-ACA-2025-PIM-011766

PATIENT
  Age: 43 Year
  Sex: Male

DRUGS (6)
  1. NUPLAZID [Suspect]
     Active Substance: PIMAVANSERIN TARTRATE
     Indication: Parkinson^s disease psychosis
     Dosage: 34 MILLIGRAM, QD
     Route: 048
     Dates: start: 20240724
  2. CAPLYTA [Concomitant]
     Active Substance: LUMATEPERONE
  3. LAMOTRIGINE [Concomitant]
     Active Substance: LAMOTRIGINE
  4. BUPROPION [Concomitant]
     Active Substance: BUPROPION
  5. RYTARY [Concomitant]
     Active Substance: CARBIDOPA\LEVODOPA
  6. CLONAZEPAM [Concomitant]
     Active Substance: CLONAZEPAM

REACTIONS (3)
  - Hallucination [Not Recovered/Not Resolved]
  - Paranoia [Not Recovered/Not Resolved]
  - Therapeutic product effect decreased [Not Recovered/Not Resolved]

NARRATIVE: CASE EVENT DATE: 20250901
